FAERS Safety Report 24082976 (Version 1)
Quarter: 2024Q3

REPORT INFORMATION
  Report Type: Spontaneous
  Country: US (occurrence: US)
  Receive Date: 20240712
  Receipt Date: 20240712
  Transmission Date: 20241016
  Serious: Yes (Hospitalization, Other)
  Sender: DR REDDYS
  Company Number: US-DRL-USA-LIT/USA/24/0009919

PATIENT
  Age: 12 Year
  Sex: Female
  Weight: 41 kg

DRUGS (3)
  1. TREPROSTINIL [Suspect]
     Active Substance: TREPROSTINIL
     Indication: Right-to-left cardiac shunt
     Dosage: 30 NG/KG/MIN
     Route: 058
  2. TADALAFIL [Suspect]
     Active Substance: TADALAFIL
     Indication: Right-to-left cardiac shunt
  3. SELEXIPAG [Suspect]
     Active Substance: SELEXIPAG
     Indication: Right-to-left cardiac shunt
     Dosage: 1100 MCG/MIN

REACTIONS (3)
  - Pulmonary hypertension [Unknown]
  - Headache [Unknown]
  - Product use in unapproved indication [Unknown]
